FAERS Safety Report 23907373 (Version 1)
Quarter: 2024Q2

REPORT INFORMATION
  Report Type: Spontaneous
  Country: TR (occurrence: TR)
  Receive Date: 20240528
  Receipt Date: 20240528
  Transmission Date: 20240715
  Serious: Yes (Death, Other)
  Sender: FDA-Public Use
  Company Number: TR-ASTELLAS-2024US014909

PATIENT
  Age: 61 Year
  Sex: Male

DRUGS (14)
  1. PADCEV [Suspect]
     Active Substance: ENFORTUMAB VEDOTIN-EJFV
     Indication: Transitional cell carcinoma metastatic
     Dosage: UNK UNK, CYCLIC
     Route: 065
     Dates: start: 202304
  2. PADCEV [Suspect]
     Active Substance: ENFORTUMAB VEDOTIN-EJFV
     Dosage: 1 MG/KG, CYCLIC (4 CYCLES)
     Route: 065
     Dates: start: 202308
  3. AVELUMAB [Suspect]
     Active Substance: AVELUMAB
     Indication: Product used for unknown indication
     Dosage: UNK UNK, UNKNOWN FREQ.
     Route: 065
     Dates: start: 202302
  4. CISPLATIN [Suspect]
     Active Substance: CISPLATIN
     Indication: Product used for unknown indication
     Dosage: UNK UNK, UNKNOWN FREQ. (ADJUVANT 4 COURSES)
     Route: 065
     Dates: start: 20201020
  5. CISPLATIN [Suspect]
     Active Substance: CISPLATIN
     Dosage: UNK UNK, UNKNOWN FREQ.
     Route: 065
     Dates: start: 202205
  6. CISPLATIN [Suspect]
     Active Substance: CISPLATIN
     Dosage: UNK UNK, CYCLIC (3 CYCLES)
     Route: 065
     Dates: start: 202208
  7. CISPLATIN [Suspect]
     Active Substance: CISPLATIN
     Dosage: UNK UNK, CYCLIC (6 CYCLES)
     Route: 065
     Dates: start: 202211
  8. GEMCITABINE [Suspect]
     Active Substance: GEMCITABINE
     Indication: Product used for unknown indication
     Dosage: UNK UNK, UNKNOWN FREQ. (ADJUVANT 4 COURSES)
     Route: 065
     Dates: start: 20201020
  9. GEMCITABINE [Suspect]
     Active Substance: GEMCITABINE
     Dosage: UNK UNK, UNKNOWN FREQ.
     Route: 065
     Dates: start: 202205
  10. GEMCITABINE [Suspect]
     Active Substance: GEMCITABINE
     Dosage: UNK UNK, CYCLIC (3 CYCLES)
     Route: 065
     Dates: start: 202208
  11. GEMCITABINE [Suspect]
     Active Substance: GEMCITABINE
     Dosage: UNK UNK, CYCLIC (6 CYCLES)
     Route: 065
     Dates: start: 202211
  12. NEBIVOLOL HYDROCHLORIDE [Concomitant]
     Active Substance: NEBIVOLOL HYDROCHLORIDE
     Indication: Product used for unknown indication
     Dosage: UNK UNK, UNKNOWN FREQ.
     Route: 065
  13. DULOXETINE [Concomitant]
     Active Substance: DULOXETINE
     Indication: Product used for unknown indication
     Dosage: UNK UNK, UNKNOWN FREQ.
     Route: 065
  14. LANTUS [Concomitant]
     Active Substance: INSULIN GLARGINE
     Indication: Product used for unknown indication
     Dosage: UNK UNK, UNKNOWN FREQ.
     Route: 065

REACTIONS (9)
  - Urosepsis [Fatal]
  - Malignant neoplasm progression [Unknown]
  - Dermatomyositis [Unknown]
  - Condition aggravated [Unknown]
  - Urinary bladder haematoma [Unknown]
  - Hyperglycaemia [Unknown]
  - Pyrexia [Unknown]
  - Dysphagia [Unknown]
  - Urinary tract infection [Unknown]

NARRATIVE: CASE EVENT DATE: 20230401
